FAERS Safety Report 4834088-0 (Version None)
Quarter: 2005Q4

REPORT INFORMATION
  Report Type: 
  Country: None (occurrence: None)
  Receive Date: 20051115
  Receipt Date: 20051031
  Transmission Date: 20060501
  Serious: Yes (Death)
  Sender: FDA-Public Use
  Company Number: 2005S1008675

PATIENT
  Age: 46 Year
  Sex: Male

DRUGS (4)
  1. CLOZAPINE [Suspect]
     Indication: SCHIZOPHRENIA
     Dosage: 200 MG; QAM; PO; 200 MG; HS; PO
     Route: 048
     Dates: start: 20031101
  2. CLOZAPINE [Suspect]
     Indication: SCHIZOPHRENIA
     Dosage: 200 MG; QAM; PO; 200 MG; HS; PO
     Route: 048
     Dates: start: 20031101
  3. TIOTIXENE [Concomitant]
  4. SPIRONOLACTONE [Concomitant]

REACTIONS (3)
  - GRANULOCYTOPENIA [None]
  - HEPATIC FAILURE [None]
  - HEPATITIS [None]
